FAERS Safety Report 7382692-0 (Version None)
Quarter: 2011Q1

REPORT INFORMATION
  Report Type: 
  Country: None (occurrence: None)
  Receive Date: 20110330
  Receipt Date: 20110321
  Transmission Date: 20110831
  Serious: Yes (Death, Hospitalization)
  Sender: FDA-Public Use
  Company Number: TR-AMGEN-TURSP2011016087

PATIENT
  Age: 52 Year
  Sex: Male

DRUGS (1)
  1. ENBREL [Suspect]
     Indication: PSORIASIS
     Dosage: 25 MG, 2X/WEEK
     Route: 058
     Dates: start: 20100316

REACTIONS (5)
  - DIARRHOEA HAEMORRHAGIC [None]
  - ANGINA PECTORIS [None]
  - DEATH [None]
  - HAEMATEMESIS [None]
  - INFLUENZA [None]
